FAERS Safety Report 8543320-1 (Version None)
Quarter: 2012Q2

REPORT INFORMATION
  Report Type: 
  Country: None (occurrence: None)
  Receive Date: 20120412
  Receipt Date: 20090403
  Transmission Date: 20120825
  Serious: Yes (Other)
  Sender: FDA-Public Use
  Company Number: PHEH2006US11226

PATIENT
  Age: 74 Year
  Sex: Female

DRUGS (2)
  1. AREDIA [Suspect]
  2. ZOMETA [Suspect]

REACTIONS (12)
  - OSTEONECROSIS [None]
  - PAIN [None]
  - PURULENCE [None]
  - BONE DISORDER [None]
  - OSTEOMYELITIS [None]
  - ANXIETY [None]
  - ERYTHEMA [None]
  - DECREASED INTEREST [None]
  - OSTEOPOROSIS [None]
  - GENERAL PHYSICAL HEALTH DETERIORATION [None]
  - SECONDARY SEQUESTRUM [None]
  - EDENTULOUS [None]
